FAERS Safety Report 25312004 (Version 1)
Quarter: 2025Q2

REPORT INFORMATION
  Report Type: Spontaneous
  Country: US (occurrence: US)
  Receive Date: 20250514
  Receipt Date: 20250514
  Transmission Date: 20250716
  Serious: Yes (Death, Hospitalization, Other)
  Sender: SANOFI AVENTIS
  Company Number: US-SANOFI-02509977

PATIENT
  Age: 60 Year
  Sex: Male

DRUGS (16)
  1. JEVTANA [Suspect]
     Active Substance: CABAZITAXEL
     Indication: Hormone-refractory prostate cancer
     Route: 042
     Dates: start: 20240111, end: 20240111
  2. DILAUDID [Concomitant]
     Active Substance: HYDROMORPHONE HYDROCHLORIDE
  3. DEXAMETHASONE [Concomitant]
     Active Substance: DEXAMETHASONE
  4. LISINOPRIL [Concomitant]
     Active Substance: LISINOPRIL
  5. METHADONE [Concomitant]
     Active Substance: METHADONE HYDROCHLORIDE
  6. GABAPENTIN [Concomitant]
     Active Substance: GABAPENTIN
  7. NUBEQA [Concomitant]
     Active Substance: DAROLUTAMIDE
  8. OXYCONTIN [Concomitant]
     Active Substance: OXYCODONE HYDROCHLORIDE
  9. PREDNISONE [Concomitant]
     Active Substance: PREDNISONE
  10. SIMVASTATIN [Concomitant]
     Active Substance: SIMVASTATIN
  11. FUROSEMIDE [Concomitant]
     Active Substance: FUROSEMIDE
  12. MOVANTIK [Concomitant]
     Active Substance: NALOXEGOL OXALATE
  13. PLUVICTO [Concomitant]
     Active Substance: LUTETIUM LU-177 VIPIVOTIDE TETRAXETAN
  14. PANTOPRAZOLE [Concomitant]
     Active Substance: PANTOPRAZOLE
  15. DOCETAXEL [Concomitant]
     Active Substance: DOCETAXEL
  16. XTAMPZA ER [Concomitant]
     Active Substance: OXYCODONE

REACTIONS (2)
  - Hormone-refractory prostate cancer [Fatal]
  - Illness [Unknown]

NARRATIVE: CASE EVENT DATE: 20240111
